FAERS Safety Report 4883954-9 (Version None)
Quarter: 2006Q1

REPORT INFORMATION
  Report Type: 
  Country: None (occurrence: None)
  Receive Date: 20060118
  Receipt Date: 20060109
  Transmission Date: 20060701
  Serious: Yes (Hospitalization)
  Sender: FDA-Public Use
  Company Number: US-ABBOTT-06P-163-0321485-00

PATIENT
  Sex: Female
  Weight: 81.72 kg

DRUGS (6)
  1. HUMIRA [Suspect]
     Indication: RHEUMATOID ARTHRITIS
     Route: 058
     Dates: start: 20031201
  2. OMEPRAZOLE [Concomitant]
     Indication: GASTROOESOPHAGEAL REFLUX DISEASE
     Route: 048
     Dates: start: 20020101
  3. OMEPRAZOLE [Concomitant]
     Indication: HIATUS HERNIA
  4. OMEPRAZOLE [Concomitant]
     Indication: ULCER
  5. CELECOXIB [Concomitant]
     Indication: PAIN
     Route: 048
     Dates: start: 20000101
  6. MAXZIDE [Concomitant]
     Indication: BLOOD PRESSURE INCREASED
     Route: 048
     Dates: start: 19980101

REACTIONS (3)
  - FALL [None]
  - LOWER LIMB FRACTURE [None]
  - SINUSITIS [None]
